FAERS Safety Report 8477804 (Version 3)
Quarter: 2013Q1

REPORT INFORMATION
  Report Type: Spontaneous
  Country: IT (occurrence: IT)
  Receive Date: 20120327
  Receipt Date: 20130321
  Transmission Date: 20140127
  Serious: Yes (Death)
  Sender: FDA-Public Use
  Company Number: PHHY2012IT025273

PATIENT
  Age: 83 Year
  Sex: Female

DRUGS (7)
  1. VOLTAREN [Suspect]
     Indication: BACK PAIN
     Dosage: 1 DF, ONCE/SINGLE
     Route: 030
     Dates: start: 20120317
  2. KETOROLAC [Concomitant]
     Indication: BACK PAIN
     Dosage: 10 MG, UNK
     Route: 030
     Dates: start: 20120317
  3. MUSCORIL [Concomitant]
     Dosage: 1 DF, BID
  4. TORA-DOL [Concomitant]
     Indication: BACK PAIN
     Dosage: 5 MG, UNK
     Route: 030
     Dates: start: 20120317
  5. RYTMONORM [Concomitant]
     Route: 048
  6. LOPRESOR [Concomitant]
     Route: 048
  7. CARDIOASPIRIN [Concomitant]
     Dosage: 100 MG, UNK
     Route: 048

REACTIONS (11)
  - Cardio-respiratory arrest [Fatal]
  - Respiratory arrest [Fatal]
  - Cyanosis [Fatal]
  - Mydriasis [Fatal]
  - Loss of consciousness [Fatal]
  - Anaphylactic shock [Fatal]
  - Syncope [Fatal]
  - Face oedema [Fatal]
  - Localised oedema [Fatal]
  - Muscle spasms [Unknown]
  - Back pain [Unknown]
